FAERS Safety Report 8411756-5 (Version None)
Quarter: 2012Q2

REPORT INFORMATION
  Report Type: 
  Country: None (occurrence: None)
  Receive Date: 20120531
  Receipt Date: 20120531
  Transmission Date: 20120825
  Serious: Yes (Life-Threatening, Hospitalization, Other)
  Sender: FDA-Public Use
  Company Number: None

PATIENT
  Sex: Female
  Weight: 83.0083 kg

DRUGS (1)
  1. PREDNISONE TAB [Suspect]
     Dosage: 20 MG 2 QD ORAL
     Route: 048

REACTIONS (1)
  - DIABETES MELLITUS [None]
